FAERS Safety Report 5408234-4 (Version None)
Quarter: 2007Q3

REPORT INFORMATION
  Report Type: 
  Country: None (occurrence: None)
  Receive Date: 20070808
  Receipt Date: 20070727
  Transmission Date: 20080115
  Serious: Yes (Hospitalization)
  Sender: FDA-Public Use
  Company Number: JP-BRISTOL-MYERS SQUIBB COMPANY-12833067

PATIENT
  Age: 36 Year
  Sex: Male

DRUGS (15)
  1. EFAVIRENZ [Suspect]
     Indication: HIV INFECTION
     Dosage: RESTARTED ON 28-MAY-2004, STOPPED AGAIN 29-JUN-2004
     Route: 048
     Dates: start: 20030427, end: 20040629
  2. VIDEX EC [Suspect]
     Indication: HIV INFECTION
     Dosage: 13OCT1997TO15OCT1997 150 MG BID,250MG DAILY 27APR03-24DEC03 RESTARTED 28MAY04, STOPPED 29-JUN-2004
     Route: 048
     Dates: start: 20030427, end: 20031224
  3. VIDEX EC [Suspect]
     Route: 048
     Dates: start: 19971013, end: 19971015
  4. ZIAGEN [Suspect]
     Indication: HIV INFECTION
     Dosage: RESTARTED ON 28-MAY-2004, STOPPED AGAIN 29-JUN-2004, AGAIN RESTARED 17-DEC-04.
     Route: 048
     Dates: start: 20030427, end: 20040629
  5. EPIVIR [Concomitant]
     Route: 048
     Dates: start: 19980710, end: 20030426
  6. ZERIT [Concomitant]
     Route: 048
     Dates: start: 19980711, end: 20030426
  7. VIRACEPT [Concomitant]
     Route: 048
     Dates: start: 19981204, end: 20030426
  8. EXCEGRAN [Concomitant]
     Dosage: 2 DOSAGE FORMS BID FROM 14-APR-2003 TO 16-APR-2003, 3 DOSAGE FORMS TID FROM 17-APR-2003
     Route: 048
     Dates: start: 20030414, end: 20030426
  9. PHENOBARBITAL TAB [Concomitant]
     Dosage: 90 MG DAILY FROM 16-APR-2003 TO 23-APR-2003, 60 MG DAILY FROM 24-APR-2003
     Route: 048
     Dates: start: 20030416, end: 20030430
  10. CALCIUM ASPARTATE [Concomitant]
     Dates: end: 20030426
  11. LOPEMIN [Concomitant]
     Dates: end: 20030426
  12. BERBERINE [Concomitant]
     Dates: end: 20030426
  13. NELFINAVIR MESYLATE [Concomitant]
     Dates: start: 19981204, end: 20030426
  14. STAVUDINE [Concomitant]
     Dates: start: 19980711, end: 20030426
  15. LAMIVUDINE [Concomitant]
     Dates: start: 19980710, end: 20030426

REACTIONS (11)
  - BLOOD URIC ACID INCREASED [None]
  - CHOLECYSTITIS ACUTE [None]
  - CHOLELITHIASIS [None]
  - CONVULSION [None]
  - GAIT DISTURBANCE [None]
  - NEUROGENIC BLADDER [None]
  - NIGHTMARE [None]
  - PYELONEPHRITIS [None]
  - PYREXIA [None]
  - RASH [None]
  - URINARY TRACT INFECTION [None]
